FAERS Safety Report 9370401 (Version 1)
Quarter: 2013Q2

REPORT INFORMATION
  Report Type: Report from Study
  Country: US (occurrence: US)
  Receive Date: 20130626
  Receipt Date: 20130626
  Transmission Date: 20140414
  Serious: Yes (Hospitalization)
  Sender: FDA-Public Use
  Company Number: US-ABBOTT-13P-163-1106695-00

PATIENT
  Age: 19 Year
  Sex: 0

DRUGS (3)
  1. HUMIRA [Suspect]
     Indication: CROHN^S DISEASE
     Dates: start: 20121113, end: 201304
  2. HUMIRA [Suspect]
     Dates: start: 201304, end: 20130521
  3. LOMOTIL [Concomitant]
     Indication: DIARRHOEA

REACTIONS (7)
  - Ileectomy [Recovering/Resolving]
  - Crohn^s disease [Unknown]
  - Frequent bowel movements [Recovering/Resolving]
  - Night sweats [Recovered/Resolved]
  - Abdominal pain [Unknown]
  - Aphthous stomatitis [Recovering/Resolving]
  - Weight decreased [Unknown]
